FAERS Safety Report 18600084 (Version 1)
Quarter: 2020Q4

REPORT INFORMATION
  Report Type: Spontaneous
  Country: US (occurrence: US)
  Receive Date: 20201209
  Receipt Date: 20201209
  Transmission Date: 20210114
  Serious: Yes (Hospitalization)
  Sender: FDA-Public Use
  Company Number: None

PATIENT
  Age: 84 Year
  Sex: Female

DRUGS (9)
  1. ASPIRIN. [Concomitant]
     Active Substance: ASPIRIN
  2. ATORVASTATIN [Concomitant]
     Active Substance: ATORVASTATIN
  3. ELIQUIS [Concomitant]
     Active Substance: APIXABAN
  4. LUMIGAN [Concomitant]
     Active Substance: BIMATOPROST
  5. PRENATAL [Concomitant]
     Active Substance: VITAMINS
  6. ESBRIET [Suspect]
     Active Substance: PIRFENIDONE
     Indication: IDIOPATHIC PULMONARY FIBROSIS
     Route: 048
     Dates: start: 20200131
  7. METOPROL TAR [Concomitant]
  8. TIMOLOL MAL [Concomitant]
  9. POT CL MICRO CR [Concomitant]

REACTIONS (2)
  - Cystitis [None]
  - Kidney infection [None]

NARRATIVE: CASE EVENT DATE: 20201109
